FAERS Safety Report 11493360 (Version 1)
Quarter: 2015Q3

REPORT INFORMATION
  Report Type: Spontaneous
  Country: US (occurrence: US)
  Receive Date: 20150911
  Receipt Date: 20150911
  Transmission Date: 20151125
  Serious: No
  Sender: FDA-Public Use
  Company Number: US-ROCHE-1031471

PATIENT
  Sex: Female

DRUGS (5)
  1. NOVOLIN R [Concomitant]
     Active Substance: INSULIN HUMAN
     Route: 065
  2. RIBAVIRIN. [Suspect]
     Active Substance: RIBAVIRIN
     Indication: CHRONIC HEPATITIS C
     Route: 065
     Dates: start: 20111213
  3. NOVOLIN N [Concomitant]
     Active Substance: INSULIN HUMAN
     Route: 065
  4. PEGASYS [Suspect]
     Active Substance: PEGINTERFERON ALFA-2A
     Indication: CHRONIC HEPATITIS C
     Route: 058
     Dates: start: 20111213
  5. LAMICTAL [Concomitant]
     Active Substance: LAMOTRIGINE
     Indication: OBSESSIVE-COMPULSIVE DISORDER

REACTIONS (6)
  - Blood glucose fluctuation [Recovering/Resolving]
  - Pruritus [Unknown]
  - Chest pain [Unknown]
  - Fatigue [Unknown]
  - Decreased interest [Unknown]
  - Diabetic glaucoma [Unknown]
